FAERS Safety Report 21185765 (Version 2)
Quarter: 2022Q3

REPORT INFORMATION
  Report Type: Spontaneous
  Country: US (occurrence: US)
  Receive Date: 20220808
  Receipt Date: 20220911
  Transmission Date: 20221027
  Serious: Yes (Hospitalization, Other)
  Sender: FDA-Public Use
  Company Number: US-SA-SAC20220805001748

PATIENT
  Age: 75 Year
  Sex: Male
  Weight: 91.8 kg

DRUGS (1)
  1. DUPIXENT [Suspect]
     Active Substance: DUPILUMAB
     Indication: Nasal polyps
     Dosage: 300 MG, QOW,300 MG QOW AND DRUG TREATMENT DURATION:7 MONTHS, DUPIXENT 300MG SYRINGE
     Route: 058
     Dates: start: 20220106

REACTIONS (4)
  - Brain operation [Unknown]
  - Surgery [Unknown]
  - Product use in unapproved indication [Unknown]
  - Product prescribing issue [Unknown]

NARRATIVE: CASE EVENT DATE: 20220101
